FAERS Safety Report 4309112-4 (Version None)
Quarter: 2004Q1

REPORT INFORMATION
  Report Type: 
  Country: None (occurrence: None)
  Receive Date: 20040227
  Receipt Date: 20040218
  Transmission Date: 20041129
  Serious: Yes (Other)
  Sender: FDA-Public Use
  Company Number: 2004US000199

PATIENT
  Age: 62 Year
  Sex: Female

DRUGS (5)
  1. AMBISOME [Suspect]
     Indication: PULMONARY MYCOSIS
     Dosage: 300.00 MG, UID/QD, INTRAVENOUS
     Route: 042
     Dates: start: 20040125, end: 20040125
  2. DIPHENHYDRAMINE HCL [Concomitant]
  3. CLONAZEPAM [Concomitant]
  4. BUSULFAN (BUSULFAN) [Concomitant]
  5. CEFOTAXIME SODIUM [Concomitant]

REACTIONS (5)
  - CHEST PAIN [None]
  - DYSPNOEA [None]
  - HYPOTONIC-HYPORESPONSIVE EPISODE [None]
  - HYPOXIA [None]
  - NEUROLOGICAL SYMPTOM [None]
